FAERS Safety Report 7588762 (Version 4)
Quarter: 2013Q1

REPORT INFORMATION
  Report Type: Spontaneous
  Country: US (occurrence: US)
  Receive Date: 20100916
  Receipt Date: 20130111
  Transmission Date: 20140127
  Serious: Yes (Hospitalization, Disabling)
  Sender: FDA-Public Use
  Company Number: US-BAYER-201033406NA

PATIENT
  Age: 48 Year
  Sex: Female
  Weight: 56.69 kg

DRUGS (8)
  1. YASMIN [Suspect]
     Indication: MENOPAUSAL SYMPTOMS
     Dosage: UNK
     Dates: start: 20060404, end: 20060516
  2. ADVIL [IBUPROFEN] [Concomitant]
     Dosage: UNK UNK, PRN
  3. BONIVA [Concomitant]
     Dosage: 150 MG, UNK
  4. VITAMIN B12 [CYANOCOBALAMIN] [Concomitant]
  5. VITAMIN B1 [Concomitant]
  6. MULTIVITAMIN [Concomitant]
  7. UNCODEABLE ^UNCLASSIFIABLE^ [Concomitant]
  8. HERBALS NOS W/VITAMINS NOS [Concomitant]

REACTIONS (8)
  - Cerebrovascular accident [None]
  - Carotid artery occlusion [None]
  - Pain [None]
  - Hemiparesis [None]
  - Cognitive disorder [None]
  - Learning disorder [None]
  - Anxiety [None]
  - Quality of life decreased [None]
